FAERS Safety Report 11069291 (Version 4)
Quarter: 2015Q2

REPORT INFORMATION
  Report Type: Spontaneous
  Country: DK (occurrence: DK)
  Receive Date: 20150427
  Receipt Date: 20150630
  Transmission Date: 20150821
  Serious: Yes (Death, Hospitalization)
  Sender: FDA-Public Use
  Company Number: DK-BAYER-2015-141593

PATIENT
  Age: 71 Year
  Sex: Male

DRUGS (15)
  1. IBUMETIN [Concomitant]
     Active Substance: IBUPROFEN
     Dosage: 400 MG, TID
  2. MORPHINE SULFATE. [Concomitant]
     Active Substance: MORPHINE SULFATE
     Dosage: 30 MG, TID
  3. XOFIGO [Suspect]
     Active Substance: RADIUM RA-223 DICHLORIDE
     Indication: PROSTATE CANCER STAGE IV
     Dosage: 4.2 MBQ, UNK
     Route: 042
     Dates: start: 20150303, end: 20150331
  4. ANDROCUR [Concomitant]
     Active Substance: CYPROTERONE ACETATE
     Dosage: UNK
  5. MAGNESIUM OXIDE. [Concomitant]
     Active Substance: MAGNESIUM OXIDE
     Dosage: UNK, BID
  6. CALCIUM [Concomitant]
     Active Substance: CALCIUM
     Dosage: UNK, QD
  7. XOFIGO [Suspect]
     Active Substance: RADIUM RA-223 DICHLORIDE
     Indication: METASTASES TO BONE
     Dosage: 4.3 MBQ, UNK
     Dates: start: 20150331
  8. LANSOPRAZOL RATIOPHARMA [Concomitant]
     Dosage: 40 MG, QD
  9. MORFIN ^DAK^ [Concomitant]
     Dosage: 10 MG, PRN
  10. PREDNISOLON [Concomitant]
     Active Substance: PREDNISOLONE
     Dosage: DAILY DOSE 50 MG
  11. IMADRAX [Concomitant]
     Active Substance: AMOXICILLIN
     Dosage: 500 MG, TID
  12. ELIGARD [Concomitant]
     Active Substance: LEUPROLIDE ACETATE
     Dosage: 45 MG, ONCE
     Dates: start: 201412
  13. PINEX [Concomitant]
     Active Substance: ACETAMINOPHEN
     Dosage: 1000 MG, QID
  14. ZYTIGA [Concomitant]
     Active Substance: ABIRATERONE ACETATE
     Dosage: 1000 MG, QD
  15. FERROFUMARAT [Concomitant]
     Dosage: UNK, QD

REACTIONS (8)
  - Sepsis [Fatal]
  - Streptococcal infection [Fatal]
  - Dyspnoea [Unknown]
  - Leukopenia [Fatal]
  - Oedema peripheral [Unknown]
  - Septic shock [Fatal]
  - Erythema [Unknown]
  - Erysipelas [Unknown]

NARRATIVE: CASE EVENT DATE: 20150404
